FAERS Safety Report 5375337-2 (Version None)
Quarter: 2007Q2

REPORT INFORMATION
  Report Type: 
  Country: None (occurrence: None)
  Receive Date: 20070629
  Receipt Date: 20070620
  Transmission Date: 20071010
  Serious: Yes (Hospitalization)
  Sender: FDA-Public Use
  Company Number: JP-ASTRAZENECA-2007AP03784

PATIENT
  Age: 68 Year
  Sex: Female

DRUGS (11)
  1. PULMICORT [Suspect]
     Indication: ASTHMA
     Route: 055
     Dates: start: 20070530, end: 20070614
  2. INTERFERON BETA [Suspect]
     Indication: HEPATITIS C
     Dates: start: 20070305
  3. INTERFERON BETA [Suspect]
     Indication: HEPATIC CIRRHOSIS
     Dates: start: 20070305
  4. AMINOLEBAN [Concomitant]
     Indication: HEPATIC FAILURE
     Route: 041
  5. LASIX [Concomitant]
     Route: 048
  6. GASTER D [Concomitant]
     Route: 048
  7. LOXONIN [Concomitant]
     Route: 048
  8. BLOPRESS [Concomitant]
     Route: 048
  9. CODEINE PHOSPHATE [Concomitant]
     Route: 048
  10. MAGNESIUM OXIDE [Concomitant]
     Route: 048
  11. PRANLUKAST HYDRATE [Concomitant]
     Route: 048

REACTIONS (3)
  - COLD SWEAT [None]
  - MALAISE [None]
  - PYREXIA [None]
